FAERS Safety Report 16767024 (Version 6)
Quarter: 2022Q1

REPORT INFORMATION
  Report Type: Spontaneous
  Country: US (occurrence: US)
  Receive Date: 20190903
  Receipt Date: 20220106
  Transmission Date: 20220423
  Serious: No
  Sender: FDA-Public Use
  Company Number: US-PFIZER INC-2016354301

PATIENT
  Age: 30 Year
  Sex: Female

DRUGS (4)
  1. LYRICA [Suspect]
     Active Substance: PREGABALIN
     Indication: Cervical spinal stenosis
     Dosage: 400 MG, (FOUR 100 (MG) CAPSULES)
  2. LYRICA [Suspect]
     Active Substance: PREGABALIN
     Indication: Cervical discharge
     Dosage: 100 MG, 3X/DAY
     Route: 048
  3. LYRICA [Suspect]
     Active Substance: PREGABALIN
     Indication: Facet joint syndrome
     Dosage: UNK (TAKING LYRICA FOUR TIMES A DAY)
  4. LYRICA [Suspect]
     Active Substance: PREGABALIN
     Indication: Spinal osteoarthritis

REACTIONS (7)
  - Intentional product use issue [Unknown]
  - Off label use [Unknown]
  - Pain [Unknown]
  - Pain in extremity [Unknown]
  - Spinal pain [Unknown]
  - Joint injury [Unknown]
  - Pain [Unknown]
